FAERS Safety Report 18262855 (Version 1)
Quarter: 2020Q3

REPORT INFORMATION
  Report Type: Spontaneous
  Country: FR (occurrence: FR)
  Receive Date: 20200914
  Receipt Date: 20200914
  Transmission Date: 20201103
  Serious: Yes (Other)
  Sender: FDA-Public Use
  Company Number: FR-PFIZER INC-2020352722

PATIENT
  Age: 71 Year
  Sex: Female
  Weight: 55 kg

DRUGS (9)
  1. VYNDAQEL [Suspect]
     Active Substance: TAFAMIDIS MEGLUMINE
     Indication: HEREDITARY NEUROPATHIC AMYLOIDOSIS
     Dosage: 20 MG, DAILY
  2. CELLCEPT [Concomitant]
     Active Substance: MYCOPHENOLATE MOFETIL\MYCOPHENOLATE MOFETIL HYDROCHLORIDE
  3. COVERSYL [PERINDOPRIL ARGININE] [Concomitant]
     Active Substance: PERINDOPRIL ARGININE
  4. CHOLURSO [Concomitant]
     Active Substance: URSODIOL
  5. GABAPENTIN. [Concomitant]
     Active Substance: GABAPENTIN
  6. AMLOR [Concomitant]
     Active Substance: AMLODIPINE BESYLATE
  7. BACTRIM [Concomitant]
     Active Substance: SULFAMETHOXAZOLE\TRIMETHOPRIM
  8. KARDEGIC [Concomitant]
     Active Substance: ASPIRIN DL-LYSINE
  9. ADVAGRAF [Concomitant]
     Active Substance: TACROLIMUS

REACTIONS (3)
  - Cardiac dysfunction [Unknown]
  - Disease progression [Unknown]
  - Hereditary neuropathic amyloidosis [Unknown]

NARRATIVE: CASE EVENT DATE: 202009
